FAERS Safety Report 9786497 (Version 7)
Quarter: 2015Q3

REPORT INFORMATION
  Report Type: Spontaneous
  Country: US (occurrence: US)
  Receive Date: 20131227
  Receipt Date: 20150708
  Transmission Date: 20151125
  Serious: Yes (Hospitalization, Other)
  Sender: FDA-Public Use
  Company Number: US-009507513-1312USA009133

PATIENT
  Sex: Female
  Weight: 72.56 kg

DRUGS (5)
  1. FOSAMAX [Suspect]
     Active Substance: ALENDRONATE SODIUM
     Dosage: 70 MG, UNK
     Route: 048
     Dates: start: 20010414, end: 20031208
  2. FOSAMAX [Suspect]
     Active Substance: ALENDRONATE SODIUM
     Indication: SENILE OSTEOPOROSIS
     Dosage: 5 MG, UNK
     Route: 048
     Dates: start: 20001120, end: 20010402
  3. FOSAMAX [Suspect]
     Active Substance: ALENDRONATE SODIUM
     Indication: OSTEOPENIA
     Dosage: 35 MG, UNK
     Route: 048
     Dates: start: 20010716, end: 20071220
  4. ALENDRONATE SODIUM. [Suspect]
     Active Substance: ALENDRONATE SODIUM
     Indication: OSTEOPOROSIS
     Dosage: 35 MG, UNK
     Dates: start: 20080312, end: 20111104
  5. FOSAMAX [Suspect]
     Active Substance: ALENDRONATE SODIUM
     Indication: OSTEOPOROSIS
     Dosage: 10 MG, UNK
     Route: 048
     Dates: start: 20000506, end: 20000709

REACTIONS (54)
  - Hypotension [Unknown]
  - Low turnover osteopathy [Unknown]
  - Incision site swelling [Recovering/Resolving]
  - Hiatus hernia [Unknown]
  - Urinary incontinence [Unknown]
  - Muscular weakness [Unknown]
  - Fall [Unknown]
  - Fall [Unknown]
  - Diverticulum [Unknown]
  - Systemic lupus erythematosus [Unknown]
  - Hypercholesterolaemia [Unknown]
  - Hip fracture [Unknown]
  - Joint arthroplasty [Unknown]
  - Compression fracture [Unknown]
  - Clavicle fracture [Unknown]
  - Pain in extremity [Unknown]
  - Constipation [Unknown]
  - Gastrooesophageal reflux disease [Unknown]
  - Vitamin D deficiency [Unknown]
  - Cardiomegaly [Unknown]
  - Acute kidney injury [Unknown]
  - Rotator cuff repair [Unknown]
  - Sternal fracture [Unknown]
  - Osteoarthritis [Unknown]
  - Chronic sinusitis [Not Recovered/Not Resolved]
  - Nausea [Unknown]
  - Joint arthroplasty [Unknown]
  - Foot fracture [Unknown]
  - Incision site haemorrhage [Recovering/Resolving]
  - Oophorectomy [Unknown]
  - Fracture nonunion [Unknown]
  - Treatment failure [Unknown]
  - Haemorrhoids [Unknown]
  - Fibrocystic breast disease [Unknown]
  - Fracture delayed union [Unknown]
  - Spinal osteoarthritis [Unknown]
  - Nephropathy [Unknown]
  - Arthralgia [Unknown]
  - Sinus operation [Unknown]
  - Acute kidney injury [Unknown]
  - Femur fracture [Unknown]
  - Lumbar vertebral fracture [Unknown]
  - Senile osteoporosis [Unknown]
  - Aortic aneurysm [Unknown]
  - Bladder repair [Unknown]
  - Dehydration [Unknown]
  - Haemorrhagic anaemia [Unknown]
  - Femur fracture [Unknown]
  - Irritable bowel syndrome [Unknown]
  - Arthralgia [Unknown]
  - Hypoacusis [Unknown]
  - Spinal laminectomy [Unknown]
  - Shoulder arthroplasty [Unknown]
  - Spinal compression fracture [Unknown]

NARRATIVE: CASE EVENT DATE: 2003
